FAERS Safety Report 9265457 (Version 1)
Quarter: 2013Q2

REPORT INFORMATION
  Report Type: Spontaneous
  Country: BR (occurrence: BR)
  Receive Date: 20130501
  Receipt Date: 20130501
  Transmission Date: 20140414
  Serious: Yes (Other)
  Sender: FDA-Public Use
  Company Number: BR-PFIZER INC-2013134658

PATIENT
  Age: 61 Year
  Sex: 0

DRUGS (8)
  1. LYRICA [Suspect]
     Indication: OSTEOARTHRITIS
     Dosage: 1 CAPSULE (75 MG), EVERY 12 HOURS
     Route: 048
     Dates: start: 20130426, end: 20130426
  2. LYRICA [Suspect]
     Indication: NERVE COMPRESSION
  3. ENALAPRIL MALEATE [Concomitant]
     Indication: BLOOD PRESSURE INCREASED
  4. HYDROCHLOROTHIAZIDE [Concomitant]
     Indication: BLOOD PRESSURE INCREASED
  5. CALCIUM [Concomitant]
     Indication: OSTEOPENIA
  6. VYTORIN [Concomitant]
     Indication: BLOOD CHOLESTEROL INCREASED
  7. ACETAMINOPHEN [Concomitant]
     Indication: PAIN
     Dosage: UNSPECIFIED DOSE, AS NEEDED
  8. MELOXICAM [Concomitant]
     Indication: PAIN
     Dosage: UNSPECIFIED DOSE, AS NEEDED

REACTIONS (5)
  - Confusional state [Recovered/Resolved]
  - Blood pressure decreased [Recovered/Resolved]
  - Bedridden [Recovered/Resolved]
  - Dysstasia [Recovered/Resolved]
  - Hypoaesthesia [Recovered/Resolved]
